FAERS Safety Report 12627736 (Version 1)
Quarter: 2016Q3

REPORT INFORMATION
  Report Type: Report from Study
  Country: VE (occurrence: VE)
  Receive Date: 20160805
  Receipt Date: 20160805
  Transmission Date: 20161109
  Serious: Yes (Other)
  Sender: FDA-Public Use
  Company Number: PHHY2016VE107638

PATIENT
  Sex: Female

DRUGS (15)
  1. DESLORATADINE. [Concomitant]
     Active Substance: DESLORATADINE
     Indication: HYPERSENSITIVITY
     Dosage: 10 MG, EVENTUALLY
     Route: 065
  2. CALCIUM [Concomitant]
     Active Substance: CALCIUM
     Indication: PROPHYLAXIS
     Dosage: 1 DF, QD
     Route: 065
  3. XOLAIR [Suspect]
     Active Substance: OMALIZUMAB
     Indication: HYPERSENSITIVITY
  4. FORADIL [Suspect]
     Active Substance: FORMOTEROL FUMARATE
     Indication: ASTHMA
     Dosage: 24 UG, QD (STARTED 3 YEARS AGO)
     Route: 055
  5. FORADIL [Suspect]
     Active Substance: FORMOTEROL FUMARATE
     Indication: HYPERSENSITIVITY
  6. MIFLONIDE [Suspect]
     Active Substance: BUDESONIDE
     Indication: ASTHMA
     Dosage: 800 UG, QD (STARTED 3 YEARS AGO)
     Route: 048
  7. MIFLONIDE [Suspect]
     Active Substance: BUDESONIDE
     Indication: HYPERSENSITIVITY
  8. FOLIC ACID. [Concomitant]
     Active Substance: FOLIC ACID
     Indication: PROPHYLAXIS
     Dosage: 5 MG, QD
     Route: 065
  9. SERETIDE [Concomitant]
     Active Substance: FLUTICASONE PROPIONATE\SALMETEROL XINAFOATE
     Indication: ASTHMA
     Dosage: EVENTUAL DOSE OF 100/1000MG
     Route: 065
     Dates: start: 2015
  10. XOLAIR [Suspect]
     Active Substance: OMALIZUMAB
     Indication: ASTHMA
     Dosage: 150 MG, QMO
     Route: 058
     Dates: start: 2014
  11. AIRON [Concomitant]
     Indication: ASTHMA
     Dosage: 10 MG, QD
     Route: 065
  12. KLAS [Concomitant]
     Indication: BRONCHIAL DISORDER
     Dosage: 1 SPOONFUL EVENTUALLY
     Route: 065
  13. LOSARTAN. [Concomitant]
     Active Substance: LOSARTAN
     Indication: BLOOD PRESSURE ABNORMAL
     Dosage: 100 MG, QD
     Route: 065
     Dates: start: 2013
  14. ENALAPRIL [Concomitant]
     Active Substance: ENALAPRIL
     Indication: BLOOD PRESSURE ABNORMAL
     Dosage: UNK UNK, QD
     Route: 065
  15. VITAMIIN C [Concomitant]
     Active Substance: ASCORBIC ACID
     Indication: PROPHYLAXIS
     Dosage: 1 DF, QD
     Route: 065

REACTIONS (10)
  - Breath sounds abnormal [Unknown]
  - Asphyxia [Unknown]
  - Incorrect product storage [Unknown]
  - Asthmatic crisis [Not Recovered/Not Resolved]
  - Humidity intolerance [Unknown]
  - Sensitivity to weather change [Unknown]
  - Product use issue [Unknown]
  - Influenza [Unknown]
  - Pain [Unknown]
  - Drug effect incomplete [Unknown]
